FAERS Safety Report 6700124-X (Version None)
Quarter: 2010Q2

REPORT INFORMATION
  Report Type: 
  Country: None (occurrence: None)
  Receive Date: 20100427
  Receipt Date: 20100427
  Transmission Date: 20101027
  Serious: Yes (Other)
  Sender: FDA-Public Use
  Company Number: None

PATIENT
  Age: 26 Year
  Sex: Female
  Weight: 54.5 kg

DRUGS (1)
  1. MISOPROSTOL [Suspect]
     Indication: LABOUR INDUCTION
     Dosage: 25 MCG ONCE VAG
     Route: 067
     Dates: start: 20100415, end: 20100415

REACTIONS (2)
  - DRUG EXPOSURE DURING PREGNANCY [None]
  - UTERINE HYPERTONUS [None]
